FAERS Safety Report 4786637-9 (Version None)
Quarter: 2005Q4

REPORT INFORMATION
  Report Type: 
  Country: None (occurrence: None)
  Receive Date: 20051003
  Receipt Date: 20051003
  Transmission Date: 20060501
  Serious: Yes (Other)
  Sender: FDA-Public Use
  Company Number: None

PATIENT
  Age: 49 Year
  Sex: Female
  Weight: 50.8029 kg

DRUGS (1)
  1. PROZAC [Suspect]
     Indication: BACK PAIN
     Dosage: ONCE A DAY ORAL PO
     Route: 048

REACTIONS (1)
  - SUICIDAL IDEATION [None]
